FAERS Safety Report 25734902 (Version 2)
Quarter: 2025Q4

REPORT INFORMATION
  Report Type: Spontaneous
  Country: CA (occurrence: CA)
  Receive Date: 20250828
  Receipt Date: 20251204
  Transmission Date: 20260118
  Serious: Yes (Other)
  Sender: CSL BEHRING
  Company Number: CA-BEH-2025216498

PATIENT
  Age: 68 Year
  Sex: Female

DRUGS (9)
  1. HUMAN IMMUNOGLOBULIN G [Suspect]
     Active Substance: HUMAN IMMUNOGLOBULIN G
     Indication: Product used for unknown indication
     Dosage: UNK
     Route: 065
  2. GAMMAGARD LIQUID [Suspect]
     Active Substance: HUMAN IMMUNOGLOBULIN G
     Indication: Product used for unknown indication
     Dosage: UNK
     Route: 065
  3. HYALURONIDASE [Suspect]
     Active Substance: HYALURONIDASE
     Indication: Primary immunodeficiency syndrome
     Dosage: 30 G, QMT
     Route: 058
  4. HYALURONIDASE [Suspect]
     Active Substance: HYALURONIDASE
     Dosage: 30 G, QMT
     Route: 065
  5. HYALURONIDASE [Suspect]
     Active Substance: HYALURONIDASE
     Dosage: 30 G, QMT
     Route: 065
  6. HYALURONIDASE [Suspect]
     Active Substance: HYALURONIDASE
     Dosage: 30 G, QMT
     Route: 065
  7. HYALURONIDASE [Suspect]
     Active Substance: HYALURONIDASE
     Dosage: 30 G, QMT
     Route: 065
  8. HYALURONIDASE [Suspect]
     Active Substance: HYALURONIDASE
     Dosage: 30 G, QMT
     Route: 058
  9. MAGNESIUM [Concomitant]
     Active Substance: MAGNESIUM
     Indication: Product used for unknown indication
     Dosage: UNK
     Route: 048

REACTIONS (24)
  - Alopecia [Recovering/Resolving]
  - Aphonia [Unknown]
  - Asthma [Unknown]
  - Device infusion issue [Unknown]
  - Fatigue [Recovering/Resolving]
  - Feeling abnormal [Unknown]
  - Feeling jittery [Unknown]
  - Gastrointestinal viral infection [Unknown]
  - Headache [Recovering/Resolving]
  - Illness [Not Recovered/Not Resolved]
  - Impaired quality of life [Unknown]
  - Influenza [Recovering/Resolving]
  - Infusion site erythema [Recovering/Resolving]
  - Infusion site haemorrhage [Recovering/Resolving]
  - Infusion site pain [Recovering/Resolving]
  - Lung disorder [Recovering/Resolving]
  - Nasopharyngitis [Unknown]
  - Nausea [Recovering/Resolving]
  - Oropharyngeal pain [Unknown]
  - Pruritus [Recovering/Resolving]
  - Sinus disorder [Recovering/Resolving]
  - Skin burning sensation [Recovering/Resolving]
  - Viral infection [Unknown]
  - Incorrect dose administered [Unknown]

NARRATIVE: CASE EVENT DATE: 20250101
